FAERS Safety Report 5511934-9 (Version None)
Quarter: 2007Q4

REPORT INFORMATION
  Report Type: 
  Country: None (occurrence: None)
  Receive Date: 20071109
  Receipt Date: 20071029
  Transmission Date: 20080405
  Serious: Yes (Other)
  Sender: FDA-Public Use
  Company Number: GB-PFIZER INC-2007092031

PATIENT
  Age: 21 Year
  Sex: Female

DRUGS (1)
  1. CHAMPIX [Suspect]

REACTIONS (14)
  - ABNORMAL BEHAVIOUR [None]
  - ASOCIAL BEHAVIOUR [None]
  - COGNITIVE DISORDER [None]
  - CONFUSIONAL STATE [None]
  - DISTURBANCE IN ATTENTION [None]
  - FEAR [None]
  - FEELING ABNORMAL [None]
  - HALLUCINATION [None]
  - HEADACHE [None]
  - HEARING IMPAIRED [None]
  - NAUSEA [None]
  - PANIC REACTION [None]
  - PRURITUS [None]
  - THINKING ABNORMAL [None]
